FAERS Safety Report 10059848 (Version 2)
Quarter: 2014Q2

REPORT INFORMATION
  Report Type: Spontaneous
  Country: US (occurrence: US)
  Receive Date: 20140404
  Receipt Date: 20140404
  Transmission Date: 20141212
  Serious: Yes (Hospitalization)
  Sender: FDA-Public Use
  Company Number: US-GLAXOSMITHKLINE-A0810031A

PATIENT
  Age: 61 Year
  Sex: Male
  Weight: 86.4 kg

DRUGS (10)
  1. AVANDIA [Suspect]
     Indication: TYPE 2 DIABETES MELLITUS
     Dosage: 4MG TWICE PER DAY
     Route: 048
     Dates: start: 19990721, end: 2006
  2. AVANDAMET [Suspect]
     Indication: DIABETES MELLITUS
     Route: 048
     Dates: start: 20040404, end: 20071022
  3. METFORMIN [Concomitant]
  4. FOSINOPRIL [Concomitant]
  5. ZOCOR [Concomitant]
  6. DIABETA [Concomitant]
  7. NEURONTIN [Concomitant]
  8. UROXATRAL [Concomitant]
  9. LEVITRA [Concomitant]
  10. CIALIS [Concomitant]

REACTIONS (3)
  - Myocardial infarction [Unknown]
  - Cardiac failure [Unknown]
  - Coronary artery disease [Unknown]
